FAERS Safety Report 7463632-2 (Version None)
Quarter: 2011Q2

REPORT INFORMATION
  Report Type: 
  Country: None (occurrence: None)
  Receive Date: 20110506
  Receipt Date: 20110502
  Transmission Date: 20111010
  Serious: Yes (Death)
  Sender: FDA-Public Use
  Company Number: JP-SANOFI-AVENTIS-2011SA027775

PATIENT
  Weight: 60 kg

DRUGS (1)
  1. TAXOTERE [Suspect]

REACTIONS (1)
  - ADVERSE EVENT [None]
